FAERS Safety Report 19048556 (Version 1)
Quarter: 2021Q1

REPORT INFORMATION
  Report Type: Spontaneous
  Country: GB (occurrence: GB)
  Receive Date: 20210323
  Receipt Date: 20210323
  Transmission Date: 20210420
  Serious: Yes (Disabling)
  Sender: FDA-Public Use
  Company Number: NVSC2021GB059788

PATIENT
  Age: 75 Year
  Sex: Male
  Weight: 76 kg

DRUGS (8)
  1. DORZOLAMIDE HYDROCHLORIDE. [Concomitant]
     Active Substance: DORZOLAMIDE HYDROCHLORIDE
     Indication: ILL-DEFINED DISORDER
     Dosage: 1 DRP, BID (ONE DROP TWICE DAILY IN EACH EYE)
     Route: 065
     Dates: start: 20200811
  2. ARIPIPRAZOLE. [Concomitant]
     Active Substance: ARIPIPRAZOLE
     Indication: ILL-DEFINED DISORDER
     Dosage: 1 DF, QD
     Route: 065
     Dates: start: 20200811
  3. FLUCLOXACILLIN [Concomitant]
     Active Substance: FLUCLOXACILLIN
     Indication: ILL-DEFINED DISORDER
     Dosage: 1 DF, QID
     Route: 065
     Dates: start: 20210218, end: 20210225
  4. FLUOXETINE [Concomitant]
     Active Substance: FLUOXETINE HYDROCHLORIDE
     Indication: ILL-DEFINED DISORDER
     Dosage: 2 DF, QD
     Route: 065
     Dates: start: 20200811
  5. BETAMETHASONE VALERATE. [Concomitant]
     Active Substance: BETAMETHASONE VALERATE
     Indication: ILL-DEFINED DISORDER
     Dosage: UNK, BID (APPLY THIN LAYER TWICE DAILY)
     Route: 065
     Dates: start: 20210227
  6. CETIRIZINE [Concomitant]
     Active Substance: CETIRIZINE HYDROCHLORIDE
     Indication: ILL-DEFINED DISORDER
     Dosage: 1 DF, QD (IF NEEDED FOR ITCHY)
     Route: 065
     Dates: start: 20201015
  7. METFORMIN [Suspect]
     Active Substance: METFORMIN HYDROCHLORIDE
     Indication: PRODUCT USED FOR UNKNOWN INDICATION
     Dosage: 500 MG
     Route: 065
     Dates: start: 20210310
  8. METFORMINE [Concomitant]
     Active Substance: METFORMIN HYDROCHLORIDE
     Indication: ILL-DEFINED DISORDER
     Dosage: 1 DF, BID
     Route: 065
     Dates: start: 20200811, end: 20210310

REACTIONS (1)
  - Blister [Unknown]

NARRATIVE: CASE EVENT DATE: 20210310
